FAERS Safety Report 5449636-X (Version None)
Quarter: 2007Q3

REPORT INFORMATION
  Report Type: 
  Country: None (occurrence: None)
  Receive Date: 20070912
  Receipt Date: 20070906
  Transmission Date: 20080115
  Serious: Yes (Other)
  Sender: FDA-Public Use
  Company Number: PHNU2007DE03097

PATIENT

DRUGS (1)
  1. PROVAS COMP [Suspect]
     Route: 048

REACTIONS (1)
  - PULMONARY HAEMORRHAGE [None]
